FAERS Safety Report 23937949 (Version 1)
Quarter: 2024Q2

REPORT INFORMATION
  Report Type: Spontaneous
  Country: BE (occurrence: BE)
  Receive Date: 20240604
  Receipt Date: 20240604
  Transmission Date: 20240715
  Serious: Yes (Other)
  Sender: FDA-Public Use
  Company Number: BE-FreseniusKabi-FK202408707

PATIENT
  Age: 37 Year
  Sex: Female

DRUGS (2)
  1. ROPIVACAINE [Suspect]
     Active Substance: ROPIVACAINE
     Indication: Retained placenta operation
     Dosage: EPIDURAL INFUSION?CONTINUOUS RATE OF OF 4 ML WITH AN OPTIONAL BOLUS OF 3 ML WITH A LOCKOUT OF TEN MI
     Route: 008
  2. ROPIVACAINE [Suspect]
     Active Substance: ROPIVACAINE
     Dosage: INJECTION VIA EPIDURAL CATHETER

REACTIONS (4)
  - Local anaesthetic systemic toxicity [Recovered/Resolved]
  - Device placement issue [Unknown]
  - Incorrect route of product administration [Unknown]
  - Maternal exposure during delivery [Unknown]
